FAERS Safety Report 8220009-X (Version None)
Quarter: 2012Q1

REPORT INFORMATION
  Report Type: 
  Country: None (occurrence: None)
  Receive Date: 20120315
  Receipt Date: 20120308
  Transmission Date: 20120608
  Serious: Yes (Other)
  Sender: FDA-Public Use
  Company Number: A0966270A

PATIENT
  Age: 68 Year
  Sex: Female

DRUGS (1)
  1. UREA PEROXIDE [Suspect]
     Indication: CERUMEN REMOVAL
     Dosage: AURAL
     Dates: start: 20120215

REACTIONS (3)
  - EAR DISCOMFORT [None]
  - PRODUCT QUALITY ISSUE [None]
  - DEAFNESS [None]
